FAERS Safety Report 10901531 (Version 2)
Quarter: 2016Q1

REPORT INFORMATION
  Report Type: Report from Study
  Country: US (occurrence: US)
  Receive Date: 20150310
  Receipt Date: 20160323
  Transmission Date: 20160525
  Serious: Yes (Hospitalization, Other)
  Sender: FDA-Public Use
  Company Number: US-SA-2014SA105899

PATIENT
  Age: 61 Year
  Sex: Female

DRUGS (2)
  1. AUBAGIO [Suspect]
     Active Substance: TERIFLUNOMIDE
     Indication: MULTIPLE SCLEROSIS
     Route: 048
     Dates: start: 20140211
  2. CORDARONE [Concomitant]
     Active Substance: AMIODARONE HYDROCHLORIDE

REACTIONS (10)
  - Asthenia [Unknown]
  - Abasia [Unknown]
  - Multiple sclerosis relapse [Unknown]
  - Ulcer [Recovering/Resolving]
  - Blood potassium decreased [Unknown]
  - Paraesthesia [Unknown]
  - Seizure [Unknown]
  - Pain in jaw [Recovering/Resolving]
  - Pain [Unknown]
  - Tooth extraction [Unknown]

NARRATIVE: CASE EVENT DATE: 201405
